FAERS Safety Report 13101250 (Version 2)
Quarter: 2017Q2

REPORT INFORMATION
  Report Type: Report from Study
  Country: US (occurrence: US)
  Receive Date: 20170110
  Receipt Date: 20170518
  Transmission Date: 20170830
  Serious: Yes (Death, Hospitalization)
  Sender: FDA-Public Use
  Company Number: US-MALLINCKRODT-T201606822

PATIENT
  Age: 43 Year
  Sex: Female
  Weight: 152 kg

DRUGS (45)
  1. ROXICODONE [Suspect]
     Active Substance: OXYCODONE HYDROCHLORIDE
     Dosage: 30 MG QID PRN
     Route: 048
     Dates: start: 20161104, end: 20161207
  2. FENTANYL TRANSDERMAL SYSTEM [Suspect]
     Active Substance: FENTANYL
     Dosage: 75 MCG, Q72HR
     Route: 062
     Dates: start: 20161213
  3. PROMETHAZINE [Concomitant]
     Active Substance: PROMETHAZINE\PROMETHAZINE HYDROCHLORIDE
     Indication: ABDOMINAL DISTENSION
     Dosage: 25 MG, Q4 PRN
     Route: 048
     Dates: start: 20160929
  4. BACLOFEN. [Concomitant]
     Active Substance: BACLOFEN
     Indication: BACK PAIN
     Dosage: 10 MG, TID
     Route: 048
     Dates: start: 201510
  5. DULCOLAX STOOL SOFTENER [Concomitant]
     Active Substance: DOCUSATE SODIUM
     Indication: CONSTIPATION
     Dosage: 100 MG, PRN
     Route: 048
     Dates: start: 201403
  6. VALTREX [Concomitant]
     Active Substance: VALACYCLOVIR HYDROCHLORIDE
     Indication: HERPES ZOSTER
     Dosage: 1000 MG, TID
     Route: 048
     Dates: start: 20161012, end: 20161019
  7. DILAUDID [Concomitant]
     Active Substance: HYDROMORPHONE HYDROCHLORIDE
     Indication: ASCITES
     Dosage: 1 MG, ONCE
     Route: 042
     Dates: start: 20161025, end: 20161025
  8. HYDROMORPHONE [Concomitant]
     Active Substance: HYDROMORPHONE
     Indication: PAIN
     Dosage: 1 MG TWICE
     Route: 042
     Dates: start: 20161122, end: 20161122
  9. HYDROMORPHONE [Concomitant]
     Active Substance: HYDROMORPHONE
     Indication: ABDOMINAL DISTENSION
     Dosage: 2 MG, UNK
     Route: 042
     Dates: start: 20161207, end: 20161207
  10. SODIUM CHLORIDE. [Concomitant]
     Active Substance: SODIUM CHLORIDE
     Indication: PROPHYLAXIS AGAINST DEHYDRATION
     Dosage: 0.9%, 1000 ML ATC
     Route: 042
     Dates: start: 20161207, end: 20161213
  11. GLUCOSAMINE CHONDROITIN SULFATE [Concomitant]
     Indication: BACK PAIN
     Dosage: 2 CAPSULES, BID
     Route: 048
     Dates: start: 20161207
  12. FENTANYL TRANSDERMAL SYSTEM [Suspect]
     Active Substance: FENTANYL
     Indication: BACK PAIN
     Dosage: 25 MCG, Q72HR
     Route: 062
     Dates: start: 20151124, end: 20161207
  13. LYRICA [Concomitant]
     Active Substance: PREGABALIN
     Indication: PERIPHERAL SENSORY NEUROPATHY
     Dosage: 225 MG, BID
     Route: 048
     Dates: start: 20140925, end: 20161213
  14. LYRICA [Concomitant]
     Active Substance: PREGABALIN
     Dosage: 225 MG, TID
     Route: 048
     Dates: start: 20161213
  15. PROMETHAZINE [Concomitant]
     Active Substance: PROMETHAZINE\PROMETHAZINE HYDROCHLORIDE
     Indication: NAUSEA
  16. DRONABINOL. [Concomitant]
     Active Substance: DRONABINOL
     Indication: INSOMNIA
     Dosage: 2.5 MG BID PRN
     Route: 048
     Dates: start: 20151124, end: 20161129
  17. AUGMENTIN [Concomitant]
     Active Substance: AMOXICILLIN\CLAVULANATE POTASSIUM
     Indication: CELLULITIS
     Dosage: 875-125 MG, BID
     Route: 048
     Dates: start: 20161129, end: 20161206
  18. POTASSIUM CHLORIDE. [Concomitant]
     Active Substance: POTASSIUM CHLORIDE
     Indication: HYPOKALAEMIA
     Dosage: 20 MEQ, SINGLE
     Dates: start: 20161122, end: 20161122
  19. ROXICODONE [Suspect]
     Active Substance: OXYCODONE HYDROCHLORIDE
     Indication: BACK PAIN
     Dosage: 20 MG, TID, PRN
     Route: 048
     Dates: start: 201603, end: 20161104
  20. ZOFRAN [Concomitant]
     Active Substance: ONDANSETRON HYDROCHLORIDE
     Indication: NAUSEA
     Dosage: 8 MG, Q8H PRN
     Route: 048
     Dates: start: 20160224
  21. DIPHENHYDRAMINE. [Concomitant]
     Active Substance: DIPHENHYDRAMINE
     Indication: PROPHYLAXIS
     Dosage: 25 MG, Q2WKS
     Route: 048
     Dates: start: 20160927
  22. HYDROMORPHONE [Concomitant]
     Active Substance: HYDROMORPHONE
     Indication: ABDOMINAL PAIN
  23. PREVACID [Concomitant]
     Active Substance: LANSOPRAZOLE
     Indication: GASTROOESOPHAGEAL REFLUX DISEASE
     Dosage: 15 MG, QD
     Route: 048
     Dates: start: 2006
  24. XANAX [Concomitant]
     Active Substance: ALPRAZOLAM
     Indication: INSOMNIA
  25. ZYRTEC [Concomitant]
     Active Substance: CETIRIZINE HYDROCHLORIDE
     Indication: SEASONAL ALLERGY
     Dosage: 10 MG, QD
     Route: 048
     Dates: start: 2010
  26. CLARITIN [Concomitant]
     Active Substance: LORATADINE
     Indication: SEASONAL ALLERGY
     Dosage: 10 MG, QD
     Route: 048
     Dates: start: 2010
  27. LOSARTAN POTASSIUM. [Concomitant]
     Active Substance: LOSARTAN POTASSIUM
     Indication: HYPERTENSION
     Dosage: 25 MG, QD
     Route: 048
     Dates: start: 20160202, end: 20161213
  28. LASIX [Concomitant]
     Active Substance: FUROSEMIDE
     Dosage: 20 MG, BID
     Route: 048
     Dates: start: 20161213
  29. PROMETHAZINE [Concomitant]
     Active Substance: PROMETHAZINE\PROMETHAZINE HYDROCHLORIDE
     Indication: VOMITING
  30. EMLA [Concomitant]
     Active Substance: LIDOCAINE\PRILOCAINE
     Indication: PAIN PROPHYLAXIS
     Dosage: 1 APP, PRN
     Route: 061
     Dates: start: 201403
  31. MIRALAX [Concomitant]
     Active Substance: POLYETHYLENE GLYCOL 3350
     Indication: CONSTIPATION
     Dosage: 17 GM, QD PRN
     Route: 048
     Dates: start: 201403
  32. DRONABINOL. [Concomitant]
     Active Substance: DRONABINOL
     Indication: NAUSEA
     Dosage: 5 MG, BID
     Route: 048
     Dates: start: 20151129
  33. LASIX [Concomitant]
     Active Substance: FUROSEMIDE
     Indication: GASTROINTESTINAL OEDEMA
     Dosage: 20 MG, SINGLE
     Route: 042
     Dates: start: 20161122, end: 20161122
  34. XANAX [Concomitant]
     Active Substance: ALPRAZOLAM
     Indication: ANXIETY
     Dosage: 0.5 MG, TID PRN
     Route: 048
     Dates: start: 20160228
  35. ATIVAN [Concomitant]
     Active Substance: LORAZEPAM
     Indication: INSOMNIA
     Dosage: 0.5 MG, QHS PRN
     Route: 048
     Dates: start: 20160404
  36. CYCLOBENZAPRINE. [Concomitant]
     Active Substance: CYCLOBENZAPRINE
     Indication: BACK PAIN
     Dosage: 10 MG, TID
     Route: 048
     Dates: start: 201510
  37. ROXICODONE [Suspect]
     Active Substance: OXYCODONE HYDROCHLORIDE
     Dosage: 60 MG Q4HRS PRN
     Route: 048
     Dates: start: 20161213
  38. ACETAMINOPHEN. [Concomitant]
     Active Substance: ACETAMINOPHEN
     Indication: PROPHYLAXIS
     Dosage: 500 MG, Q2WKS WITH INFUSION
     Route: 048
     Dates: start: 20160927
  39. CYMBALTA [Concomitant]
     Active Substance: DULOXETINE HYDROCHLORIDE
     Indication: DEPRESSION
     Dosage: 20 MG, BID
     Route: 048
     Dates: start: 2015
  40. DILAUDID [Concomitant]
     Active Substance: HYDROMORPHONE HYDROCHLORIDE
     Indication: ABDOMINAL PAIN
     Dosage: 2 MG, PRN
     Route: 042
     Dates: start: 20161207, end: 20161207
  41. HYDROMORPHONE [Concomitant]
     Active Substance: HYDROMORPHONE
     Indication: GASTROINTESTINAL OEDEMA
     Dosage: PCA Q 2 HR PRN
     Route: 042
     Dates: start: 20161207, end: 20161213
  42. CYMBALTA [Concomitant]
     Active Substance: DULOXETINE HYDROCHLORIDE
     Indication: PERIPHERAL SENSORY NEUROPATHY
  43. MAGNESIUM OXIDE. [Concomitant]
     Active Substance: MAGNESIUM OXIDE
     Indication: HYPOMAGNESAEMIA
     Dosage: 400 MG, QD
     Route: 048
     Dates: start: 201403
  44. DILAUDID [Concomitant]
     Active Substance: HYDROMORPHONE HYDROCHLORIDE
     Dosage: 2 MG, Q2HRS PRN
     Route: 042
     Dates: start: 20161207, end: 20161213
  45. KEFLEX [Concomitant]
     Active Substance: CEPHALEXIN
     Indication: CELLULITIS
     Dosage: 500 MG, BID
     Dates: start: 20161122, end: 20161129

REACTIONS (7)
  - Nausea [Recovering/Resolving]
  - Pulmonary oedema [Recovering/Resolving]
  - Drug ineffective [Recovering/Resolving]
  - Vomiting [Recovering/Resolving]
  - Diarrhoea [Recovering/Resolving]
  - Abdominal pain [Fatal]
  - Disease progression [Fatal]

NARRATIVE: CASE EVENT DATE: 20161206
